FAERS Safety Report 9992377 (Version 1)
Quarter: 2014Q1

REPORT INFORMATION
  Report Type: Spontaneous
  Country: CA (occurrence: CA)
  Receive Date: 20140310
  Receipt Date: 20140310
  Transmission Date: 20141002
  Serious: Yes (Other)
  Sender: FDA-Public Use
  Company Number: CA-GLAXOSMITHKLINE-A1063932A

PATIENT
  Age: 8 Year
  Sex: Female
  Weight: 30 kg

DRUGS (3)
  1. ADVAIR DISKUS [Suspect]
     Indication: PRODUCT USED FOR UNKNOWN INDICATION
     Dosage: 250MCG TWICE PER DAY
     Route: 048
  2. ADVAIR DISKUS [Suspect]
     Indication: PRODUCT USED FOR UNKNOWN INDICATION
     Dosage: 125MCG AS REQUIRED
     Route: 055
  3. SINGULAIR [Concomitant]
     Route: 048

REACTIONS (2)
  - Adrenal insufficiency [Not Recovered/Not Resolved]
  - Blood cortisol decreased [Unknown]
